FAERS Safety Report 14266258 (Version 1)
Quarter: 2017Q4

REPORT INFORMATION
  Report Type: Report from Study
  Country: CR (occurrence: CR)
  Receive Date: 20171210
  Receipt Date: 20171210
  Transmission Date: 20180321
  Serious: Yes (Death)
  Sender: FDA-Public Use
  Company Number: PHHY2017CR183092

PATIENT
  Age: 51 Year
  Sex: Male

DRUGS (1)
  1. EXFORGE [Suspect]
     Active Substance: AMLODIPINE BESYLATE\VALSARTAN
     Indication: PRODUCT USED FOR UNKNOWN INDICATION
     Dosage: UNK (5 MG AMLODIPINE /320 MG VALSARTAN)
     Route: 065

REACTIONS (1)
  - Death [Fatal]
